FAERS Safety Report 6434326-7 (Version None)
Quarter: 2009Q4

REPORT INFORMATION
  Report Type: 
  Country: None (occurrence: None)
  Receive Date: 20091110
  Receipt Date: 20081008
  Transmission Date: 20100525
  Serious: No
  Sender: FDA-Public Use
  Company Number: US-ASTRAZENECA-2009UW15376

PATIENT
  Age: 81 Year
  Sex: Female

DRUGS (2)
  1. PRILOSEC OTC [Suspect]
     Route: 048
     Dates: start: 20041001
  2. CARDIAC THERAPY [Concomitant]

REACTIONS (1)
  - INCORRECT DRUG ADMINISTRATION DURATION [None]
